FAERS Safety Report 4760372-5 (Version None)
Quarter: 2005Q3

REPORT INFORMATION
  Report Type: 
  Country: None (occurrence: None)
  Receive Date: 20050826
  Receipt Date: 20041006
  Transmission Date: 20060218
  Serious: Yes (Life-Threatening, Hospitalization)
  Sender: FDA-Public Use
  Company Number: 239687

PATIENT
  Age: 82 Year
  Sex: Female
  Weight: 112.5 kg

DRUGS (4)
  1. NOVOLIN R [Suspect]
     Indication: INSULIN-REQUIRING TYPE II DIABETES MELLITUS
     Dosage: SLIDING SCALE,BID,SUBCUTANEOUS
     Route: 058
     Dates: start: 20040601
  2. NOVOLIN N [Concomitant]
  3. ZOCOR [Concomitant]
  4. MEVACOR [Concomitant]

REACTIONS (1)
  - HYPOGLYCAEMIC COMA [None]
